FAERS Safety Report 7664515 (Version 5)
Quarter: 2013Q4

REPORT INFORMATION
  Report Type: Spontaneous
  Country: US (occurrence: US)
  Receive Date: 20101111
  Receipt Date: 20131007
  Transmission Date: 20140711
  Serious: Yes (Other)
  Sender: FDA-Public Use
  Company Number: US-ROCHE-718934

PATIENT
  Age: 15 Year
  Sex: Male
  Weight: 90.7 kg

DRUGS (2)
  1. ACCUTANE [Suspect]
     Indication: ACNE CYSTIC
     Route: 048
     Dates: start: 20070405, end: 20070429
  2. ACCUTANE [Suspect]
     Route: 048
     Dates: start: 20070503, end: 20070507

REACTIONS (6)
  - Colitis [Unknown]
  - Inflammatory bowel disease [Unknown]
  - Intestinal haemorrhage [Unknown]
  - Gastrointestinal injury [Unknown]
  - Chapped lips [Unknown]
  - Aspartate aminotransferase increased [Recovered/Resolved]
